FAERS Safety Report 7468011-X (Version None)
Quarter: 2011Q2

REPORT INFORMATION
  Report Type: 
  Country: None (occurrence: None)
  Receive Date: 20110509
  Receipt Date: 20110504
  Transmission Date: 20111010
  Serious: Yes (Death, Hospitalization)
  Sender: FDA-Public Use
  Company Number: IT-PFIZER INC-2011095647

PATIENT
  Sex: Male

DRUGS (1)
  1. SUTENT [Suspect]
     Indication: INSULINOMA
     Dosage: UNK

REACTIONS (1)
  - GENERAL PHYSICAL HEALTH DETERIORATION [None]
